FAERS Safety Report 9249839 (Version 3)
Quarter: 2013Q2

REPORT INFORMATION
  Report Type: Spontaneous
  Country: TR (occurrence: TR)
  Receive Date: 20130423
  Receipt Date: 20130521
  Transmission Date: 20140414
  Serious: Yes (Other)
  Sender: FDA-Public Use
  Company Number: PHHY2013TR038167

PATIENT
  Age: 51 Year
  Sex: Male

DRUGS (1)
  1. SEBIVO [Suspect]
     Indication: CHRONIC HEPATITIS B
     Dosage: 600 MG
     Route: 048
     Dates: start: 20130315, end: 20130415

REACTIONS (7)
  - VIIth nerve paralysis [Recovering/Resolving]
  - Rheumatoid factor increased [Unknown]
  - Blood immunoglobulin G abnormal [Unknown]
  - High density lipoprotein decreased [Unknown]
  - Blood glucose increased [Unknown]
  - Liver injury [Unknown]
  - Hepatitis B DNA increased [Unknown]
